FAERS Safety Report 12850435 (Version 2)
Quarter: 2017Q3

REPORT INFORMATION
  Report Type: Report from Study
  Country: None (occurrence: BR)
  Receive Date: 20161014
  Receipt Date: 20170706
  Transmission Date: 20171127
  Serious: Yes (Other)
  Sender: FDA-Public Use
  Company Number: BR-ABBVIE-16P-020-1753653-00

PATIENT
  Age: 48 Year
  Sex: Female
  Weight: 79 kg

DRUGS (3)
  1. SYNTHROID [Suspect]
     Active Substance: LEVOTHYROXINE SODIUM
     Indication: HYPOTHYROIDISM
     Route: 048
  2. VITAMIN D [Suspect]
     Active Substance: CHOLECALCIFEROL
     Indication: VITAMIN D DECREASED
     Route: 065
  3. VITAMIN D [Suspect]
     Active Substance: CHOLECALCIFEROL
     Route: 065
     Dates: end: 20161014

REACTIONS (6)
  - Bladder disorder [Recovered/Resolved]
  - Vitamin D decreased [Not Recovered/Not Resolved]
  - Abdominal pain upper [Not Recovered/Not Resolved]
  - Groin pain [Not Recovered/Not Resolved]
  - Therapy cessation [Unknown]
  - Blood insulin increased [Not Recovered/Not Resolved]

NARRATIVE: CASE EVENT DATE: 201412
